FAERS Safety Report 8178765 (Version 10)
Quarter: 2012Q4

REPORT INFORMATION
  Report Type: 
  Country: JP (occurrence: JP)
  Receive Date: 20111013
  Receipt Date: 20121029
  Transmission Date: 20130627
  Serious: Yes (Hospitalization, Other)
  Sender: FDA-Public Use
  Company Number: PHHY2011JP89019

PATIENT
  Age: 67 Year
  Sex: Male
  Weight: 55 kg

DRUGS (10)
  1. ZOMETA [Suspect]
     Indication: METASTASES TO BONE
     Dosage: 4 mg, once every four week
     Route: 041
     Dates: start: 20070124, end: 20111003
  2. DIART [Concomitant]
     Indication: CARDIAC FAILURE CHRONIC
     Dosage: 60 mg, UNK
     Route: 048
     Dates: end: 20111003
  3. LANIRAPID [Concomitant]
     Indication: CARDIAC FAILURE CHRONIC
     Dosage: 0.1 mg, UNK
     Route: 048
     Dates: end: 20111003
  4. KALGUT [Concomitant]
     Indication: CARDIAC FAILURE CHRONIC
     Dosage: 15 mg, UNK
     Route: 048
     Dates: end: 20111003
  5. NEUQUINON [Concomitant]
     Indication: CARDIAC FAILURE CHRONIC
     Dosage: 30 mg, UNK
     Route: 048
     Dates: end: 20111003
  6. LIVACT [Concomitant]
     Indication: HEPATIC CIRRHOSIS
     Dosage: 8.3 mg, UNK
     Route: 048
     Dates: start: 20060412, end: 20111003
  7. SUNRYTHM [Concomitant]
     Indication: ARRHYTHMIA
     Dosage: 100 mg, UNK
     Route: 048
     Dates: start: 20060426, end: 20111003
  8. WARFARIN [Concomitant]
     Indication: CARDIAC VALVE DISEASE
     Dosage: 1.5 mg, UNK
     Route: 048
     Dates: start: 20060428, end: 20111003
  9. PARIET [Concomitant]
     Indication: GASTROOESOPHAGEAL REFLUX DISEASE
     Dosage: 10 mg, UNK
     Route: 048
     Dates: start: 20080512, end: 20111003
  10. MYSLEE [Concomitant]
     Indication: INSOMNIA
     Dosage: 0.5 mg, UNK
     Route: 048
     Dates: start: 20100222, end: 20111003

REACTIONS (8)
  - Cardiac failure chronic [Recovered/Resolved]
  - Osteonecrosis [Unknown]
  - Osteochondrosis [Recovering/Resolving]
  - Joint swelling [Recovering/Resolving]
  - Gastrooesophageal reflux disease [Recovering/Resolving]
  - Pain in extremity [Recovering/Resolving]
  - Oedema peripheral [Recovering/Resolving]
  - Insomnia [Recovering/Resolving]
